FAERS Safety Report 9853179 (Version 3)
Quarter: 2014Q1

REPORT INFORMATION
  Report Type: Report from Study
  Country: JP (occurrence: JP)
  Receive Date: 20140129
  Receipt Date: 20140312
  Transmission Date: 20141002
  Serious: Yes (Other)
  Sender: FDA-Public Use
  Company Number: JP-009507513-1308JPN004970

PATIENT
  Age: 77 Year
  Sex: Male

DRUGS (89)
  1. EMEND [Suspect]
     Indication: PROPHYLAXIS OF NAUSEA AND VOMITING
     Dosage: 125 MG, QD, STRENGTH-80,125 MG
     Route: 048
     Dates: start: 20110705, end: 20110705
  2. EMEND [Suspect]
     Dosage: 80 MG, QD, STRENGTH-80,125 MG
     Route: 048
     Dates: start: 20110706, end: 20110707
  3. EMEND [Suspect]
     Dosage: 125 MG, QD, STRENGTH-80,125 MG
     Route: 048
     Dates: start: 20110719, end: 20110719
  4. EMEND [Suspect]
     Dosage: 80 MG, QD, STRENGTH-80,125 MG
     Route: 048
     Dates: start: 20110720, end: 20110721
  5. EMEND [Suspect]
     Dosage: 125 MG, QD, STRENGTH-80,125 MG
     Route: 048
     Dates: start: 20110802, end: 20110802
  6. EMEND [Suspect]
     Dosage: 80 MG, QD, STRENGTH-80,125 MG
     Route: 048
     Dates: start: 20110803, end: 20110804
  7. EMEND [Suspect]
     Dosage: 125 MG, QD, STRENGTH-80,125 MG
     Route: 048
     Dates: start: 20110816, end: 20110816
  8. EMEND [Suspect]
     Dosage: 80 MG, QD, STRENGTH-80,125 MG
     Route: 048
     Dates: start: 20110817, end: 20110818
  9. EMEND [Suspect]
     Dosage: 125 MG, QD, STRENGTH-80,125 MG
     Route: 048
     Dates: start: 20110830, end: 20110830
  10. EMEND [Suspect]
     Dosage: 80 MG, QD, STRENGTH-80,125 MG
     Route: 048
     Dates: start: 20110831, end: 20110901
  11. EMEND [Suspect]
     Dosage: 125 MG, QD, STRENGTH-80,125 MG
     Route: 048
     Dates: start: 20110927, end: 20110927
  12. EMEND [Suspect]
     Dosage: 80 MG, QD, STRENGTH-80,125 MG
     Route: 048
     Dates: start: 20110928, end: 20110929
  13. EMEND [Suspect]
     Dosage: 125 MG, QD, STRENGTH-80,125 MG
     Route: 048
     Dates: start: 20111018, end: 20111018
  14. EMEND [Suspect]
     Dosage: 80 MG, QD, STRENGTH-80,125 MG
     Route: 048
     Dates: start: 20111019, end: 20111020
  15. EMEND [Suspect]
     Dosage: 125 MG, QD, STRENGTH-80,125 MG
     Route: 048
     Dates: start: 20111108, end: 20111108
  16. EMEND [Suspect]
     Dosage: 80 MG, QD, STRENGTH-80,125 MG
     Route: 048
     Dates: start: 20111109, end: 20111110
  17. CAMPTO [Suspect]
     Indication: SMALL CELL LUNG CANCER
     Dosage: 70 MG, QD
     Route: 042
     Dates: start: 20110705, end: 20110705
  18. CAMPTO [Suspect]
     Dosage: 90 MG, QD
     Route: 042
     Dates: start: 20110719, end: 20110719
  19. CAMPTO [Suspect]
     Dosage: 100 MG, QD
     Route: 042
     Dates: start: 20110802, end: 20110802
  20. CAMPTO [Suspect]
     Dosage: 100 MG, QD
     Route: 042
     Dates: start: 20110816, end: 20110816
  21. CAMPTO [Suspect]
     Dosage: 100 MG, QD
     Route: 042
     Dates: start: 20110830, end: 20110830
  22. CAMPTO [Suspect]
     Dosage: 100 MG, QD
     Route: 042
     Dates: start: 20110927, end: 20110927
  23. CAMPTO [Suspect]
     Dosage: 100 MG, QD
     Route: 042
     Dates: start: 20111018, end: 20111018
  24. CAMPTO [Suspect]
     Dosage: 100 MG, UNK
     Route: 042
     Dates: start: 20111108, end: 20111108
  25. DECADRON PHOSPHATE INJECTION [Concomitant]
     Dosage: UNK
     Dates: start: 20110705, end: 20110705
  26. DECADRON PHOSPHATE INJECTION [Concomitant]
     Dosage: UNK
     Dates: start: 20110719, end: 20110719
  27. DECADRON PHOSPHATE INJECTION [Concomitant]
     Dosage: UNK
     Dates: start: 20110802, end: 20110802
  28. DECADRON PHOSPHATE INJECTION [Concomitant]
     Dosage: UNK
     Dates: start: 20110816, end: 20110816
  29. DECADRON PHOSPHATE INJECTION [Concomitant]
     Dosage: UNK
     Dates: start: 20110830, end: 20110830
  30. DECADRON PHOSPHATE INJECTION [Concomitant]
     Dosage: UNK
     Dates: start: 20110927, end: 20110927
  31. DECADRON PHOSPHATE INJECTION [Concomitant]
     Dosage: UNK
     Dates: start: 20111018, end: 20111018
  32. DECADRON PHOSPHATE INJECTION [Concomitant]
     Dosage: UNK
     Dates: start: 20111108, end: 20111108
  33. KYTRIL [Concomitant]
     Dosage: UNK
     Dates: start: 20110705, end: 20110705
  34. KYTRIL [Concomitant]
     Dosage: UNK
     Dates: start: 20110719, end: 20110719
  35. KYTRIL [Concomitant]
     Dosage: UNK
     Dates: start: 20110802, end: 20110802
  36. KYTRIL [Concomitant]
     Dosage: UNK
     Dates: start: 20110816, end: 20110816
  37. KYTRIL [Concomitant]
     Dosage: UNK
     Dates: start: 20110830, end: 20110830
  38. KYTRIL [Concomitant]
     Dosage: UNK
     Dates: start: 20110927, end: 20110927
  39. KYTRIL [Concomitant]
     Dosage: UNK
     Dates: start: 20111018, end: 20111018
  40. KYTRIL [Concomitant]
     Dosage: UNK
     Dates: start: 20111108, end: 20111108
  41. ELIETEN [Concomitant]
     Dosage: UNK
     Dates: start: 20110705, end: 20110705
  42. ELIETEN [Concomitant]
     Dosage: UNK
     Dates: start: 20110719, end: 20110719
  43. ELIETEN [Concomitant]
     Dosage: UNK
     Dates: start: 20110802, end: 20110802
  44. ELIETEN [Concomitant]
     Dosage: UNK
     Dates: start: 20110816, end: 20110816
  45. ELIETEN [Concomitant]
     Dosage: UNK
     Dates: start: 20110830, end: 20110830
  46. ELIETEN [Concomitant]
     Dosage: UNK
     Dates: start: 20110927, end: 20110927
  47. ELIETEN [Concomitant]
     Dosage: UNK
     Dates: start: 20111018, end: 20111018
  48. ELIETEN [Concomitant]
     Dosage: UNK
     Dates: start: 20111108, end: 20111108
  49. DIGOSIN [Concomitant]
     Dosage: UNK
     Dates: start: 20110705, end: 20110707
  50. DIGOSIN [Concomitant]
     Dosage: UNK
     Dates: start: 20110719, end: 20110721
  51. DIGOSIN [Concomitant]
     Dosage: UNK
     Dates: start: 20110802, end: 20110804
  52. DIGOSIN [Concomitant]
     Dosage: UNK
     Dates: start: 20110816, end: 20110818
  53. DIGOSIN [Concomitant]
     Dosage: UNK
     Dates: start: 20110830, end: 20110901
  54. DIGOSIN [Concomitant]
     Dosage: UNK
     Dates: start: 20110927, end: 20110929
  55. DIGOSIN [Concomitant]
     Dosage: UNK
     Dates: start: 20111018, end: 20111020
  56. DIGOSIN [Concomitant]
     Dosage: UNK
     Dates: start: 20111108, end: 20111110
  57. LASIX (FUROSEMIDE) [Concomitant]
     Dosage: UNK
     Dates: start: 20110705, end: 20110707
  58. LASIX (FUROSEMIDE) [Concomitant]
     Dosage: UNK
     Dates: start: 20110719, end: 20110721
  59. LASIX (FUROSEMIDE) [Concomitant]
     Dosage: UNK
     Dates: start: 20110802, end: 20110804
  60. LASIX (FUROSEMIDE) [Concomitant]
     Dosage: UNK
     Dates: start: 20110816, end: 20110818
  61. LASIX (FUROSEMIDE) [Concomitant]
     Dosage: UNK
     Dates: start: 20110830, end: 20110901
  62. LASIX (FUROSEMIDE) [Concomitant]
     Dosage: UNK
     Dates: start: 20110927, end: 20110929
  63. LASIX (FUROSEMIDE) [Concomitant]
     Dosage: UNK
     Dates: start: 20111018, end: 20111020
  64. LASIX (FUROSEMIDE) [Concomitant]
     Dosage: UNK
     Dates: start: 20111108, end: 20111110
  65. TAKEPRON [Concomitant]
     Dosage: UNK
     Dates: start: 20110705, end: 20110707
  66. TAKEPRON [Concomitant]
     Dosage: UNK
     Dates: start: 20110719, end: 20110721
  67. TAKEPRON [Concomitant]
     Dosage: UNK
     Dates: start: 20110802, end: 20110804
  68. TAKEPRON [Concomitant]
     Dosage: UNK
     Dates: start: 20110816, end: 20110818
  69. TAKEPRON [Concomitant]
     Dosage: UNK
     Dates: start: 20110830, end: 20110901
  70. TAKEPRON [Concomitant]
     Dosage: UNK
     Dates: start: 20110927, end: 20110929
  71. TAKEPRON [Concomitant]
     Dosage: UNK
     Dates: start: 20111018, end: 20111020
  72. TAKEPRON [Concomitant]
     Dosage: UNK
     Dates: start: 20111108, end: 20111110
  73. LAC-B [Concomitant]
     Dosage: UNK
     Dates: start: 20110705, end: 20110707
  74. LAC-B [Concomitant]
     Dosage: UNK
     Dates: start: 20110719, end: 20110721
  75. LAC-B [Concomitant]
     Dosage: UNK
     Dates: start: 20110802, end: 20110804
  76. LAC-B [Concomitant]
     Dosage: UNK
     Dates: start: 20110816, end: 20110818
  77. LAC-B [Concomitant]
     Dosage: UNK
     Dates: start: 20110830, end: 20110901
  78. LAC-B [Concomitant]
     Dosage: UNK
     Dates: start: 20110927, end: 20110929
  79. LAC-B [Concomitant]
     Dosage: UNK
     Dates: start: 20111018, end: 20111020
  80. LAC-B [Concomitant]
     Dosage: UNK
     Dates: start: 20111108, end: 20111110
  81. WARFARIN SODIUM [Concomitant]
     Dosage: UNK
     Route: 048
     Dates: start: 20110705, end: 20110707
  82. WARFARIN SODIUM [Concomitant]
     Dosage: UNK
     Route: 048
     Dates: start: 20110719, end: 20110721
  83. WARFARIN SODIUM [Concomitant]
     Dosage: UNK
     Route: 048
     Dates: start: 20110802, end: 20110804
  84. WARFARIN SODIUM [Concomitant]
     Dosage: UNK
     Route: 048
     Dates: start: 20110816, end: 20110818
  85. WARFARIN SODIUM [Concomitant]
     Dosage: UNK
     Route: 048
     Dates: start: 20110830, end: 20110901
  86. WARFARIN SODIUM [Concomitant]
     Dosage: UNK
     Route: 048
     Dates: start: 20110927, end: 20110929
  87. WARFARIN SODIUM [Concomitant]
     Dosage: UNK
     Route: 048
     Dates: start: 20111018, end: 20111020
  88. WARFARIN SODIUM [Concomitant]
     Dosage: UNK
     Route: 048
     Dates: start: 20111108, end: 20111110
  89. ZYLORIC [Concomitant]
     Dosage: UNK
     Dates: start: 20110802, end: 20111110

REACTIONS (2)
  - Gout [Recovered/Resolved]
  - Peripheral sensory neuropathy [Unknown]
